FAERS Safety Report 6841501-6 (Version None)
Quarter: 2010Q3

REPORT INFORMATION
  Report Type: 
  Country: None (occurrence: None)
  Receive Date: 20100709
  Receipt Date: 20100701
  Transmission Date: 20110219
  Serious: Yes (Hospitalization)
  Sender: FDA-Public Use
  Company Number: 007107

PATIENT
  Sex: Female
  Weight: 60.8 kg

DRUGS (1)
  1. CERTOLIZUMAB PEGOL [Suspect]
     Indication: RHEUMATOID ARTHRITIS
     Dosage: (400 G 1X/MONTH SUBCUTANEOUS)
     Route: 058
     Dates: start: 20031223, end: 20091216

REACTIONS (1)
  - LUNG ADENOCARCINOMA [None]
